FAERS Safety Report 5043059-3 (Version None)
Quarter: 2006Q2

REPORT INFORMATION
  Report Type: 
  Country: None (occurrence: None)
  Receive Date: 20060628
  Receipt Date: 20060613
  Transmission Date: 20061013
  Serious: Yes (Hospitalization)
  Sender: FDA-Public Use
  Company Number: US-2005-019968

PATIENT
  Age: 32 Year
  Sex: Female
  Weight: 113 kg

DRUGS (7)
  1. BETASERON [Suspect]
     Indication: RELAPSING-REMITTING MULTIPLE SCLEROSIS
     Dosage: 8 MIU, EVERY 2D, SUBCUTANEOUS
     Route: 058
     Dates: start: 20040315
  2. MYSOLINE [Concomitant]
  3. BACLOFEN [Concomitant]
  4. CELEXA [Concomitant]
  5. PROTONIX [Concomitant]
  6. TOPAMAX [Concomitant]
  7. DETROL -SLOW RELEASE (TOLTERODINE L-TARTRATE) [Concomitant]

REACTIONS (9)
  - DISEASE PROGRESSION [None]
  - DIZZINESS [None]
  - HYPOAESTHESIA [None]
  - MUSCULAR WEAKNESS [None]
  - NAUSEA [None]
  - PAIN IN EXTREMITY [None]
  - PARAESTHESIA [None]
  - PARALYSIS [None]
  - URINARY INCONTINENCE [None]
